FAERS Safety Report 4717611-6 (Version None)
Quarter: 2005Q3

REPORT INFORMATION
  Report Type: 
  Country: None (occurrence: None)
  Receive Date: 20050712
  Receipt Date: 20050405
  Transmission Date: 20060218
  Serious: No
  Sender: FDA-Public Use
  Company Number: 2005S1000061

PATIENT
  Age: 81 Year
  Sex: Female
  Weight: 79 kg

DRUGS (7)
  1. CUBICIN [Suspect]
     Indication: INTRASPINAL ABSCESS
     Dosage: 4 MG/KG;Q24H;IV
     Route: 042
     Dates: start: 20050324, end: 20050325
  2. FUROSEMIDE [Concomitant]
  3. METOPROLOL [Concomitant]
  4. PANTOPRAZOLE [Concomitant]
  5. PROPRANOLOL [Concomitant]
  6. PRIMIDONE [Concomitant]
  7. ZYVOX [Concomitant]

REACTIONS (1)
  - LEUKOPENIA [None]
